FAERS Safety Report 9509541 (Version 1)
Quarter: 2013Q3

REPORT INFORMATION
  Report Type: Spontaneous
  Country: US (occurrence: US)
  Receive Date: 20130909
  Receipt Date: 20130909
  Transmission Date: 20140515
  Serious: No
  Sender: FDA-Public Use
  Company Number: US-BRISTOL-MYERS SQUIBB COMPANY-17253576

PATIENT
  Age: 29 Year
  Sex: Female

DRUGS (4)
  1. ABILIFY [Suspect]
     Indication: BIPOLAR DISORDER
     Dosage: INTERRUPTED AND RESTARTED
     Dates: start: 201210, end: 20121218
  2. ATIVAN [Concomitant]
  3. AMBIEN [Concomitant]
  4. ADDERALL [Concomitant]

REACTIONS (1)
  - Hypertension [Unknown]
